FAERS Safety Report 14313187 (Version 7)
Quarter: 2024Q3

REPORT INFORMATION
  Report Type: Spontaneous
  Country: IT (occurrence: IT)
  Receive Date: 20171221
  Receipt Date: 20240925
  Transmission Date: 20241017
  Serious: Yes (Hospitalization, Other)
  Sender: AUROBINDO
  Company Number: None

PATIENT
  Age: 80 Year
  Sex: Male

DRUGS (11)
  1. METFORMIN [Suspect]
     Active Substance: METFORMIN HYDROCHLORIDE
     Indication: Atrial fibrillation
     Dosage: UNK
     Route: 065
  2. METFORMIN [Suspect]
     Active Substance: METFORMIN HYDROCHLORIDE
     Indication: Hypertension
  3. METFORMIN [Suspect]
     Active Substance: METFORMIN HYDROCHLORIDE
     Indication: Diabetes mellitus
  4. RAMIPRIL [Suspect]
     Active Substance: RAMIPRIL
     Indication: Diabetes mellitus
     Dosage: 5 MILLIGRAM
     Route: 048
  5. RAMIPRIL [Suspect]
     Active Substance: RAMIPRIL
     Indication: Atrial fibrillation
  6. RAMIPRIL [Suspect]
     Active Substance: RAMIPRIL
     Indication: Hypertension
  7. RAMIPRIL [Suspect]
     Active Substance: RAMIPRIL
     Indication: Hypertension
     Dosage: 5 MILLIGRAM (5 MG, UNK)
     Route: 065
  8. ASPIRIN [Suspect]
     Active Substance: ASPIRIN
     Indication: Ventricular fibrillation
     Dosage: 300 MILLIGRAM
     Route: 065
  9. ASPIRIN [Suspect]
     Active Substance: ASPIRIN
     Indication: Hypertension
  10. ASPIRIN [Suspect]
     Active Substance: ASPIRIN
     Indication: Diabetes mellitus
  11. ASPIRIN [Suspect]
     Active Substance: ASPIRIN
     Indication: Ventricular fibrillation

REACTIONS (4)
  - Hemiplegia [Unknown]
  - Embolic stroke [Unknown]
  - Basilar artery thrombosis [Recovered/Resolved]
  - Product use in unapproved indication [Unknown]
